FAERS Safety Report 22613164 (Version 1)
Quarter: 2023Q2

REPORT INFORMATION
  Report Type: Spontaneous
  Country: BR (occurrence: BR)
  Receive Date: 20230618
  Receipt Date: 20230618
  Transmission Date: 20230721
  Serious: Yes (Hospitalization)
  Sender: FDA-Public Use
  Company Number: BR-ABBOTT-2023A-1365223

PATIENT
  Age: 16 Year
  Sex: Female
  Weight: 69 kg

DRUGS (1)
  1. DEPAKOTE [Suspect]
     Active Substance: DIVALPROEX SODIUM
     Indication: Juvenile myoclonic epilepsy
     Dosage: 1 TABLET EVERY 12 HOURS?EXTENDED RELEASE
     Route: 048

REACTIONS (5)
  - Hypersensitivity [Recovering/Resolving]
  - Rash [Recovering/Resolving]
  - Drug interaction [Unknown]
  - Liver disorder [Recovering/Resolving]
  - Pyrexia [Recovering/Resolving]

NARRATIVE: CASE EVENT DATE: 20230603
